FAERS Safety Report 21826355 (Version 1)
Quarter: 2023Q1

REPORT INFORMATION
  Report Type: Spontaneous
  Country: BG (occurrence: None)
  Receive Date: 20230106
  Receipt Date: 20230106
  Transmission Date: 20230417
  Serious: Yes (Other)
  Sender: FDA-Public Use
  Company Number: BG-ROCHE-3256488

PATIENT
  Sex: Female

DRUGS (2)
  1. OCREVUS [Suspect]
     Active Substance: OCRELIZUMAB
     Indication: Multiple sclerosis
     Dosage: FIRST 600-MG DOSE ADMINISTERED AS TWO 300- MG IV INFUSIONS OVER APPROXIMATELY 2.5 HOURS, SEPARATED B
     Route: 042
     Dates: start: 20221222
  2. BISOPROLOL FUMARATE [Concomitant]
     Active Substance: BISOPROLOL FUMARATE
     Indication: Hypertension
     Route: 048

REACTIONS (4)
  - Syncope [Recovered/Resolved]
  - Dizziness [Recovered/Resolved]
  - Vision blurred [Recovered/Resolved]
  - Mastitis [Not Recovered/Not Resolved]

NARRATIVE: CASE EVENT DATE: 20221225
